FAERS Safety Report 5343484-7 (Version None)
Quarter: 2007Q2

REPORT INFORMATION
  Report Type: 
  Country: None (occurrence: None)
  Receive Date: 20070604
  Receipt Date: 20070523
  Transmission Date: 20071010
  Serious: Yes (Other)
  Sender: FDA-Public Use
  Company Number: PHBS2007SI08779

PATIENT
  Age: 32 Year
  Sex: Male
  Weight: 57 kg

DRUGS (3)
  1. CARBAMAZEPINE [Suspect]
     Indication: TRIGEMINAL NEURALGIA
     Dosage: 600 MG/DAY
     Route: 065
  2. GABAPENTIN [Suspect]
     Dosage: 1800 MG/DAY
     Route: 065
  3. BACLOFEN [Suspect]
     Dosage: 75 MG/DAY
     Route: 065

REACTIONS (3)
  - FEAR [None]
  - SLEEP DISORDER [None]
  - SUICIDAL IDEATION [None]
